FAERS Safety Report 23627150 (Version 1)
Quarter: 2024Q1

REPORT INFORMATION
  Report Type: Spontaneous
  Country: US (occurrence: US)
  Receive Date: 20240313
  Receipt Date: 20240313
  Transmission Date: 20240409
  Serious: Yes (Hospitalization, Other)
  Sender: FDA-Public Use
  Company Number: US-002147023-NVSC2024US048823

PATIENT

DRUGS (7)
  1. LETROZOLE [Suspect]
     Active Substance: LETROZOLE
     Indication: Breast cancer
     Dosage: UNK UNK, QD
     Route: 065
     Dates: start: 201807
  2. LETROZOLE [Suspect]
     Active Substance: LETROZOLE
     Indication: Breast cancer metastatic
  3. IBRANCE [Suspect]
     Active Substance: PALBOCICLIB
     Indication: Breast cancer
     Dosage: 75 MG, QD
     Route: 048
     Dates: start: 20230712, end: 20231128
  4. IBRANCE [Suspect]
     Active Substance: PALBOCICLIB
     Indication: Breast cancer metastatic
  5. PALBOCICLIB [Suspect]
     Active Substance: PALBOCICLIB
     Indication: Breast cancer
     Dosage: 75 MG
     Route: 065
     Dates: start: 20190215
  6. PALBOCICLIB [Suspect]
     Active Substance: PALBOCICLIB
     Indication: Breast cancer metastatic
     Dosage: 75 MG, QD (21 WITH 7 DAYS OFF FOR 28 DAY CYCLE)
     Route: 048
     Dates: start: 20230714
  7. PALBOCICLIB [Suspect]
     Active Substance: PALBOCICLIB
     Dosage: 75 MG, QD (21 DOSES FOLLOWED BY 7 DAYS OFF TREATMENT) WITH FOOD)
     Route: 048
     Dates: start: 20231110, end: 20231202

REACTIONS (2)
  - Diverticulitis [Unknown]
  - Neutropenia [Recovering/Resolving]
